FAERS Safety Report 19007486 (Version 1)
Quarter: 2021Q1

REPORT INFORMATION
  Report Type: Spontaneous
  Country: US (occurrence: US)
  Receive Date: 20210315
  Receipt Date: 20210315
  Transmission Date: 20210420
  Serious: No
  Sender: FDA-Public Use
  Company Number: None

PATIENT
  Age: 53 Year
  Sex: Male
  Weight: 102.4 kg

DRUGS (22)
  1. INSULIN REGULAR [Concomitant]
     Active Substance: INSULIN NOS
  2. ACETAMINOPHEN. [Concomitant]
     Active Substance: ACETAMINOPHEN
     Dates: start: 20201206, end: 20201210
  3. PERCOCET [Concomitant]
     Active Substance: ACETAMINOPHEN\OXYCODONE HYDROCHLORIDE
     Dates: start: 20201212, end: 20201215
  4. ACETAZOLAMIDE. [Concomitant]
     Active Substance: ACETAZOLAMIDE
  5. ENOXAPARIN [Concomitant]
     Active Substance: ENOXAPARIN
  6. ASCORBIC ACID. [Concomitant]
     Active Substance: ASCORBIC ACID
  7. CHOLECALCIFEROL [Concomitant]
     Active Substance: CHOLECALCIFEROL
  8. LACTULOSE. [Concomitant]
     Active Substance: LACTULOSE
  9. REMDESIVIR. [Suspect]
     Active Substance: REMDESIVIR
     Indication: COVID-19
     Route: 042
     Dates: start: 20201124, end: 20201128
  10. CEFEPIME [Concomitant]
     Active Substance: CEFEPIME HYDROCHLORIDE
  11. MIDAZOLAM. [Concomitant]
     Active Substance: MIDAZOLAM
  12. METRONIDAZOLE. [Concomitant]
     Active Substance: METRONIDAZOLE
  13. DEXAMETHASONE. [Concomitant]
     Active Substance: DEXAMETHASONE
  14. METOPROLOL TARTRATE. [Concomitant]
     Active Substance: METOPROLOL TARTRATE
  15. FENTANYL. [Concomitant]
     Active Substance: FENTANYL
  16. ASPIRIN. [Concomitant]
     Active Substance: ASPIRIN
  17. FUROSEMIDE. [Concomitant]
     Active Substance: FUROSEMIDE
  18. PREDNISONE. [Concomitant]
     Active Substance: PREDNISONE
  19. VANCOMYCIN [Concomitant]
     Active Substance: VANCOMYCIN
  20. AMLODIPINE [Concomitant]
     Active Substance: AMLODIPINE BESYLATE
  21. DOXYCYCLINE. [Concomitant]
     Active Substance: DOXYCYCLINE
  22. CISATRACURIUM. [Concomitant]
     Active Substance: CISATRACURIUM

REACTIONS (4)
  - Transaminases increased [None]
  - Alanine aminotransferase increased [None]
  - Aspartate aminotransferase increased [None]
  - Nonspecific reaction [None]

NARRATIVE: CASE EVENT DATE: 20201223
